FAERS Safety Report 5663635-4 (Version None)
Quarter: 2008Q1

REPORT INFORMATION
  Report Type: 
  Country: None (occurrence: None)
  Receive Date: 20080310
  Receipt Date: 20080222
  Transmission Date: 20080703
  Serious: Yes (Hospitalization)
  Sender: FDA-Public Use
  Company Number: DSA_31518_2008

PATIENT
  Age: 86 Year
  Sex: Male

DRUGS (5)
  1. DILTIAZEM HYDROCHLORIDE [Suspect]
     Indication: DRUG USE FOR UNKNOWN INDICATION
     Dosage: (200 MG QD ORAL)
     Route: 048
  2. FONZYLANE (FONZYLANE - BUFLOMEDIL HYDROCHLORIDE) [Suspect]
     Indication: DRUG USE FOR UNKNOWN INDICATION
     Dosage: (300 MG BID ORAL)
     Route: 048
     Dates: start: 19970101, end: 20071209
  3. PLAVIX [Concomitant]
  4. FUROSEMIDE [Concomitant]
  5. DISCOTRINE [Concomitant]

REACTIONS (5)
  - ATRIOVENTRICULAR BLOCK [None]
  - BLOOD CREATININE ABNORMAL [None]
  - CARDIOMEGALY [None]
  - PULMONARY EMBOLISM [None]
  - TROPONIN INCREASED [None]
